FAERS Safety Report 5806180-5 (Version None)
Quarter: 2008Q3

REPORT INFORMATION
  Report Type: 
  Country: None (occurrence: None)
  Receive Date: 20080710
  Receipt Date: 20080630
  Transmission Date: 20090109
  Serious: Yes (Other)
  Sender: FDA-Public Use
  Company Number: DE-AVENTIS-200816406GDDC

PATIENT

DRUGS (1)
  1. GLIBENCLAMIDE [Suspect]

REACTIONS (1)
  - GRANULOMATOUS LIVER DISEASE [None]
